FAERS Safety Report 10262081 (Version 2)
Quarter: 2014Q2

REPORT INFORMATION
  Report Type: Report from Study
  Country: US (occurrence: US)
  Receive Date: 20140626
  Receipt Date: 20140626
  Transmission Date: 20141212
  Serious: Yes (Hospitalization)
  Sender: FDA-Public Use
  Company Number: US-VIIV HEALTHCARE LIMITED-A0617351A

PATIENT
  Sex: Male
  Weight: 2.3 kg

DRUGS (5)
  1. EPZICOM [Suspect]
     Dosage: 1TAB PER DAY
     Route: 064
  2. RETROVIR [Suspect]
     Indication: HIV INFECTION
     Route: 064
     Dates: start: 20060724, end: 20060724
  3. REYATAZ [Concomitant]
     Dosage: 300MG PER DAY
     Route: 064
  4. RITONAVIR [Concomitant]
     Dosage: 100MG PER DAY
     Route: 064
  5. GLYBURIDE [Concomitant]
     Dosage: 2.5MG PER DAY
     Route: 064

REACTIONS (7)
  - Hyperbilirubinaemia [Unknown]
  - Low birth weight baby [Unknown]
  - Hypoglycaemia [Unknown]
  - Sepsis [Unknown]
  - Dermatitis contact [Unknown]
  - Premature baby [Unknown]
  - Foetal exposure during pregnancy [Unknown]
